FAERS Safety Report 7820186-6 (Version None)
Quarter: 2011Q4

REPORT INFORMATION
  Report Type: 
  Country: None (occurrence: None)
  Receive Date: 20111018
  Receipt Date: 20111013
  Transmission Date: 20120403
  Serious: Yes (Other)
  Sender: FDA-Public Use
  Company Number: IN-PFIZER INC-2011242522

PATIENT
  Age: 24 Year
  Sex: Male

DRUGS (1)
  1. PREDNISOLONE [Suspect]
     Indication: VIITH NERVE PARALYSIS
     Dosage: 60 MG PER DAY

REACTIONS (1)
  - CHORIORETINOPATHY [None]
